FAERS Safety Report 9644856 (Version 3)
Quarter: 2018Q4

REPORT INFORMATION
  Report Type: Spontaneous
  Country: JP (occurrence: JP)
  Receive Date: 20131025
  Receipt Date: 20181127
  Transmission Date: 20190205
  Serious: Yes (Death, Hospitalization)
  Sender: FDA-Public Use
  Company Number: PHHY2013JP119698

PATIENT
  Age: 53 Year
  Sex: Female

DRUGS (1)
  1. ZOMETA [Suspect]
     Active Substance: ZOLEDRONIC ACID
     Indication: METASTASES TO BONE
     Dosage: UNK
     Route: 041

REACTIONS (7)
  - Oral pain [Not Recovered/Not Resolved]
  - Swelling face [Unknown]
  - Respiratory failure [Fatal]
  - Breast cancer metastatic [Unknown]
  - Metastases to bone [Unknown]
  - Soft tissue mass [Unknown]
  - Trismus [Unknown]

NARRATIVE: CASE EVENT DATE: 201110
